FAERS Safety Report 25971180 (Version 1)
Quarter: 2025Q4

REPORT INFORMATION
  Report Type: Spontaneous
  Country: US (occurrence: US)
  Receive Date: 20251028
  Receipt Date: 20251028
  Transmission Date: 20260117
  Serious: No
  Sender: ABBVIE
  Company Number: US-ABBVIE-6520797

PATIENT
  Age: 50 Year

DRUGS (1)
  1. VRAYLAR [Suspect]
     Active Substance: CARIPRAZINE
     Indication: Major depression
     Dosage: 1.5 MILLIGRAM
     Route: 048

REACTIONS (1)
  - Tremor [Unknown]
